FAERS Safety Report 7288137-3 (Version None)
Quarter: 2011Q1

REPORT INFORMATION
  Report Type: 
  Country: None (occurrence: None)
  Receive Date: 20110208
  Receipt Date: 20110208
  Transmission Date: 20110831
  Serious: Yes (Hospitalization)
  Sender: FDA-Public Use
  Company Number: None

PATIENT
  Sex: Male
  Weight: 78.98 kg

DRUGS (1)
  1. TAXOL [Suspect]
     Dosage: 105 MG
     Dates: end: 20090617

REACTIONS (6)
  - HYPOTENSION [None]
  - PNEUMONIA [None]
  - HYDRONEPHROSIS [None]
  - POST PROCEDURAL COMPLICATION [None]
  - URINARY TRACT DISORDER [None]
  - WHITE BLOOD CELL COUNT DECREASED [None]
